FAERS Safety Report 9795782 (Version 1)
Quarter: 2014Q1

REPORT INFORMATION
  Report Type: Spontaneous
  Country: BR (occurrence: BR)
  Receive Date: 20140103
  Receipt Date: 20140103
  Transmission Date: 20141002
  Serious: Yes (Other)
  Sender: FDA-Public Use
  Company Number: BR-SA-2013SA136018

PATIENT
  Age: 62 Year
  Sex: Female
  Weight: 75 kg

DRUGS (4)
  1. LANTUS [Suspect]
     Indication: TYPE 2 DIABETES MELLITUS
     Route: 058
     Dates: start: 201306
  2. APIDRA [Concomitant]
     Indication: TYPE 2 DIABETES MELLITUS
     Dosage: AS PER GLYCEMIC INDEX
     Route: 058
     Dates: start: 20131212
  3. CLIKSTAR [Concomitant]
     Indication: DEVICE THERAPY
     Dates: start: 201306
  4. SOLOSTAR [Concomitant]
     Dates: start: 20131212

REACTIONS (1)
  - Autoimmune disorder [Not Recovered/Not Resolved]
